FAERS Safety Report 11858670 (Version 1)
Quarter: 2015Q4

REPORT INFORMATION
  Report Type: Spontaneous
  Country: US (occurrence: US)
  Receive Date: 20151222
  Receipt Date: 20151222
  Transmission Date: 20160305
  Serious: Yes (Hospitalization)
  Sender: FDA-Public Use
  Company Number: US-RECKITT BENCKISER HEALTHCARE INT LIMITED-RB-09956-2015

PATIENT
  Sex: Female

DRUGS (1)
  1. MUCINEX FAST-MAX COLD AND SINUS [Suspect]
     Active Substance: ACETAMINOPHEN\GUAIFENESIN\PHENYLEPHRINE HYDROCHLORIDE
     Indication: PRODUCT USED FOR UNKNOWN INDICATION
     Dosage: 1 TABLET EVERY 4 HOURS
     Route: 065
     Dates: start: 201412

REACTIONS (4)
  - Fall [Unknown]
  - Dehydration [Unknown]
  - Movement disorder [Unknown]
  - Asthenia [Unknown]
